FAERS Safety Report 13748807 (Version 1)
Quarter: 2017Q3

REPORT INFORMATION
  Report Type: Spontaneous
  Country: US (occurrence: US)
  Receive Date: 20170712
  Receipt Date: 20170712
  Transmission Date: 20171127
  Serious: Yes (Hospitalization, Other)
  Sender: FDA-Public Use
  Company Number: None

PATIENT
  Age: 68 Year
  Sex: Female
  Weight: 76.5 kg

DRUGS (11)
  1. PRAVASTATIN. [Concomitant]
     Active Substance: PRAVASTATIN
  2. COENZYME Q10 [Concomitant]
     Active Substance: UBIDECARENONE
  3. BABY ASPIRIN [Concomitant]
     Active Substance: ASPIRIN
  4. FISH OIL [Concomitant]
     Active Substance: FISH OIL
  5. VITAMIN D3 [Concomitant]
     Active Substance: CHOLECALCIFEROL
  6. METOPROLOL. [Concomitant]
     Active Substance: METOPROLOL
  7. BUDESONIDE 3MG CAP PAR [Suspect]
     Active Substance: BUDESONIDE
     Indication: COLITIS MICROSCOPIC
     Dosage: ?          OTHER STRENGTH:MG;QUANTITY:135 CAPSULE(S);?
     Route: 048
     Dates: start: 20170101, end: 20170116
  8. VITAMIN C [Concomitant]
     Active Substance: ASCORBIC ACID
  9. ENALAPRIL [Concomitant]
     Active Substance: ENALAPRIL
  10. ONE-A-DAY WOMEN^S VITAMIN [Concomitant]
  11. VITAMIN B12 [Concomitant]
     Active Substance: CYANOCOBALAMIN

REACTIONS (13)
  - Nonspecific reaction [None]
  - Insomnia [None]
  - Middle insomnia [None]
  - Blood pressure increased [None]
  - Blindness unilateral [None]
  - Product colour issue [None]
  - Nightmare [None]
  - Headache [None]
  - Agitation [None]
  - Colitis microscopic [None]
  - Disease recurrence [None]
  - Vision blurred [None]
  - Anxiety [None]

NARRATIVE: CASE EVENT DATE: 20170110
